FAERS Safety Report 6707997-5 (Version None)
Quarter: 2010Q2

REPORT INFORMATION
  Report Type: 
  Country: None (occurrence: None)
  Receive Date: 20100503
  Receipt Date: 20090227
  Transmission Date: 20101027
  Serious: Yes (Other)
  Sender: FDA-Public Use
  Company Number: CA-BAYER-200817113NA

PATIENT
  Age: 30 Year
  Sex: Female
  Weight: 132 kg

DRUGS (6)
  1. BETASERON [Suspect]
     Indication: MULTIPLE SCLEROSIS
     Dosage: TOTAL DAILY DOSE: 8 MIU
     Route: 058
     Dates: end: 20080618
  2. BETASERON [Suspect]
     Dosage: TOTAL DAILY DOSE: 4 MIU
     Route: 058
     Dates: start: 20080226
  3. EFFEXOR [Concomitant]
     Route: 048
  4. YASMIN [Concomitant]
     Indication: CONTRACEPTION
     Route: 048
  5. CALCIUM AND VITAMIN D [Concomitant]
     Indication: BONE DISORDER
     Route: 048
  6. RITALIN [Concomitant]
     Route: 048

REACTIONS (10)
  - AFFECT LABILITY [None]
  - DEPRESSION [None]
  - FATIGUE [None]
  - GOITRE [None]
  - INJECTION SITE PAIN [None]
  - INJECTION SITE PRURITUS [None]
  - INJECTION SITE RASH [None]
  - INJECTION SITE SWELLING [None]
  - NAUSEA [None]
  - PARANOIA [None]
